FAERS Safety Report 9960835 (Version 1)
Quarter: 2014Q1

REPORT INFORMATION
  Report Type: Spontaneous
  Country: US (occurrence: None)
  Receive Date: 20140304
  Receipt Date: 20140304
  Transmission Date: 20141002
  Serious: No
  Sender: FDA-Public Use
  Company Number: None

PATIENT
  Age: 61 Year
  Sex: Female
  Weight: 123 kg

DRUGS (1)
  1. DULOXETINE [Suspect]
     Indication: DEPRESSION
     Route: 048
     Dates: start: 20130101, end: 20140228

REACTIONS (4)
  - Disturbance in attention [None]
  - Feeling abnormal [None]
  - Affect lability [None]
  - Product substitution issue [None]
